FAERS Safety Report 5473864-0 (Version None)
Quarter: 2007Q4

REPORT INFORMATION
  Report Type: 
  Country: None (occurrence: None)
  Receive Date: 20071001
  Receipt Date: 20070919
  Transmission Date: 20080405
  Serious: Yes (Other)
  Sender: FDA-Public Use
  Company Number: US-PFIZER INC-2007078762

PATIENT
  Sex: Male
  Weight: 115.7 kg

DRUGS (2)
  1. CHANTIX [Suspect]
     Indication: SMOKING CESSATION THERAPY
  2. MELATONIN [Concomitant]

REACTIONS (3)
  - ANGER [None]
  - NIGHTMARE [None]
  - VIOLENCE-RELATED SYMPTOM [None]
